FAERS Safety Report 17255470 (Version 1)
Quarter: 2020Q1

REPORT INFORMATION
  Report Type: Spontaneous
  Country: US (occurrence: US)
  Receive Date: 20200110
  Receipt Date: 20200110
  Transmission Date: 20200409
  Serious: Yes (Death)
  Sender: FDA-Public Use
  Company Number: US-ROCHE-2519591

PATIENT
  Age: 52 Year
  Sex: Female

DRUGS (1)
  1. TECENTRIQ [Suspect]
     Active Substance: ATEZOLIZUMAB
     Indication: PRODUCT USED FOR UNKNOWN INDICATION
     Dosage: 1200MG/20ML
     Route: 042
     Dates: start: 201908, end: 201912

REACTIONS (1)
  - Death [Fatal]

NARRATIVE: CASE EVENT DATE: 20191228
